FAERS Safety Report 5145466-7 (Version None)
Quarter: 2006Q4

REPORT INFORMATION
  Report Type: 
  Country: None (occurrence: None)
  Receive Date: 20061101
  Receipt Date: 20061016
  Transmission Date: 20070319
  Serious: Yes (Hospitalization)
  Sender: FDA-Public Use
  Company Number: US-2006-021899

PATIENT
  Age: 47 Year
  Sex: Female
  Weight: 63 kg

DRUGS (5)
  1. BETASERON [Suspect]
     Indication: RELAPSING-REMITTING MULTIPLE SCLEROSIS
     Dosage: 8 MIU, EVERY 2D, SUBCUTANEOUS
     Route: 058
     Dates: start: 20030205
  2. MITOXANTRONE [Suspect]
     Dosage: 1X/3 MNTHS
  3. PROZAC [Concomitant]
  4. TOPAMAX [Concomitant]
  5. PRED-FORTE EYE DROPS (PREDNISOLONE ACETATE)DROP [Concomitant]

REACTIONS (16)
  - ABDOMINAL PAIN LOWER [None]
  - CHOLELITHIASIS [None]
  - COLONIC POLYP [None]
  - CONVULSION [None]
  - HAEMATOMA [None]
  - INJECTION SITE NECROSIS [None]
  - INJECTION SITE REACTION [None]
  - INTESTINAL DILATATION [None]
  - INTESTINAL POLYP [None]
  - LUNG INFILTRATION [None]
  - NEUTROPENIA [None]
  - PLEURAL EFFUSION [None]
  - POSTOPERATIVE FEVER [None]
  - RASH [None]
  - UVEITIS [None]
  - WRONG TECHNIQUE IN DRUG USAGE PROCESS [None]
